FAERS Safety Report 7936516-0 (Version None)
Quarter: 2011Q4

REPORT INFORMATION
  Report Type: 
  Country: None (occurrence: None)
  Receive Date: 20111123
  Receipt Date: 20111115
  Transmission Date: 20120403
  Serious: Yes (Hospitalization)
  Sender: FDA-Public Use
  Company Number: US-MYLANLABS-2011S1022162

PATIENT
  Age: 43 Year
  Sex: Female
  Weight: 81.65 kg

DRUGS (2)
  1. AMBIEN [Concomitant]
     Route: 048
  2. NITROFURANTOIN MONOHYDRATE/MACROCRYSTALS [Suspect]
     Indication: URINARY TRACT INFECTION
     Route: 048
     Dates: start: 20111012, end: 20111014

REACTIONS (7)
  - ARTHRALGIA [None]
  - OCULAR HYPERAEMIA [None]
  - JAUNDICE [None]
  - HEADACHE [None]
  - ABDOMINAL PAIN [None]
  - NAUSEA [None]
  - HEPATITIS [None]
